FAERS Safety Report 16380659 (Version 3)
Quarter: 2024Q1

REPORT INFORMATION
  Report Type: Spontaneous
  Country: US (occurrence: US)
  Receive Date: 20190601
  Receipt Date: 20240320
  Transmission Date: 20240410
  Serious: Yes (Life-Threatening, Hospitalization, Other)
  Sender: FDA-Public Use
  Company Number: US-ACCORD-051211

PATIENT
  Age: 71 Year
  Sex: Female

DRUGS (10)
  1. METHOTREXATE [Suspect]
     Active Substance: METHOTREXATE
     Indication: Central nervous system lymphoma
     Dosage: 4 G/M2 (INITIATED ON DAY 641)
  2. TACROLIMUS [Suspect]
     Active Substance: TACROLIMUS
     Indication: Immunosuppressant drug therapy
  3. MYCOPHENOLATE MOFETIL [Suspect]
     Active Substance: MYCOPHENOLATE MOFETIL
     Indication: Immunosuppressant drug therapy
     Dosage: ALSO RECEIVED 500 MG IN 12 HOURS
  4. THYMOGLOBULIN [Suspect]
     Active Substance: LAPINE T-LYMPHOCYTE IMMUNE GLOBULIN
     Indication: Immunosuppressant drug therapy
  5. PREDNISONE [Suspect]
     Active Substance: PREDNISONE
     Indication: Immunosuppressant drug therapy
  6. LEUCOVORIN [Concomitant]
     Active Substance: LEUCOVORIN\LEUCOVORIN CALCIUM
     Dosage: 0.1 G/M2
  7. DEXAMETHASONE [Concomitant]
     Active Substance: DEXAMETHASONE
  8. TEMOZOLOMIDE [Concomitant]
     Active Substance: TEMOZOLOMIDE
  9. RITUXIMAB [Concomitant]
     Active Substance: RITUXIMAB
  10. MYCOPHENOLATE MOFETIL [Suspect]
     Active Substance: MYCOPHENOLATE MOFETIL
     Indication: Immunosuppressant drug therapy
     Dosage: ALSO RECEIVED 500 MG IN 12 HOURS

REACTIONS (10)
  - Central nervous system lesion [Recovered/Resolved]
  - Muscular weakness [Recovered/Resolved]
  - Brain oedema [Recovered/Resolved]
  - Haemorrhagic stroke [Recovered/Resolved]
  - Diffuse large B-cell lymphoma [Recovered/Resolved]
  - Post transplant lymphoproliferative disorder [Recovered/Resolved]
  - Acute kidney injury [Unknown]
  - Nephropathy toxic [Recovering/Resolving]
  - Drug clearance decreased [Unknown]
  - Off label use [Unknown]
